FAERS Safety Report 24120703 (Version 1)
Quarter: 2024Q3

REPORT INFORMATION
  Report Type: Other
  Country: GB (occurrence: GB)
  Receive Date: 20240722
  Receipt Date: 20240722
  Transmission Date: 20241017
  Serious: Yes (Death, Other)
  Sender: B BRAUN
  Company Number: GB-B.Braun Medical Inc.-2159333

PATIENT
  Age: 51 Year
  Sex: Female

DRUGS (6)
  1. MEROPENEM [Suspect]
     Active Substance: MEROPENEM
     Indication: Enterobacter infection
  2. MEROPENEM [Suspect]
     Active Substance: MEROPENEM
     Indication: Antibiotic therapy
  3. FLUDARABINE [Concomitant]
     Active Substance: FLUDARABINE PHOSPHATE
  4. ITRACONAZOLE [Concomitant]
     Active Substance: ITRACONAZOLE
  5. IDARUBICIN [Concomitant]
     Active Substance: IDARUBICIN
  6. CYTARABINE [Concomitant]
     Active Substance: CYTARABINE

REACTIONS (3)
  - Fungal infection [Fatal]
  - Staphylococcal infection [Fatal]
  - Enterococcal infection [Fatal]
